FAERS Safety Report 7956990 (Version 2)
Quarter: 2012Q4

REPORT INFORMATION
  Report Type: Spontaneous
  Country: US (occurrence: None)
  Receive Date: 20110505
  Receipt Date: 20121010
  Transmission Date: 20130627
  Serious: Yes (Hospitalization, Other)
  Sender: FDA-Public Use
  Company Number: 2011MA004515

PATIENT
  Sex: Female
  Weight: 106.6 kg

DRUGS (25)
  1. METOCLOPRAMIDE [Suspect]
     Indication: ACID REFLUX
     Dates: start: 2007, end: 2011
  2. METOCLOPRAMIDE [Suspect]
     Indication: GERD
     Dates: start: 2007, end: 2011
  3. METOCLOPRAMIDE [Suspect]
     Indication: NAUSEA
     Dates: start: 2007, end: 2011
  4. ALBUTEROL [Concomitant]
  5. CEFDINIR [Concomitant]
  6. CLONIDINE [Concomitant]
  7. COMPAZINE [Concomitant]
  8. COZAAR [Concomitant]
  9. CYMBALTA [Concomitant]
  10. FENTANYL [Concomitant]
  11. FLEXERIL [Concomitant]
  12. HYDROXYZINE [Concomitant]
  13. ISOSORBIDE [Concomitant]
  14. LORCET [Concomitant]
  15. MAXALT [Concomitant]
  16. MORPHINE SULFATE [Concomitant]
  17. NEURONTIN [Concomitant]
  18. NORVASC [Concomitant]
  19. PHENERGAN [Concomitant]
  20. PREDNISONE [Concomitant]
  21. SYMBICORT [Concomitant]
  22. SULFAMETHOXAZOLE/TRIMETHOPRIM [Concomitant]
  23. TUSSIONEX [Concomitant]
  24. VALIUM [Concomitant]
  25. XIFAXAN [Concomitant]

REACTIONS (7)
  - Tardive dyskinesia [None]
  - Extrapyramidal disorder [None]
  - Economic problem [None]
  - Emotional disorder [None]
  - Anxiety [None]
  - Pain [None]
  - Speech disorder [None]
